FAERS Safety Report 5586391-7 (Version None)
Quarter: 2008Q1

REPORT INFORMATION
  Report Type: 
  Country: None (occurrence: None)
  Receive Date: 20080110
  Receipt Date: 20080102
  Transmission Date: 20080703
  Serious: Yes (Other)
  Sender: FDA-Public Use
  Company Number: PHBS2008ES00442

PATIENT
  Age: 69 Year
  Sex: Female

DRUGS (1)
  1. ZOMETA [Suspect]
     Indication: BREAST CANCER METASTATIC
     Dosage: 4 MG, UNK
     Route: 042
     Dates: start: 20060525, end: 20070815

REACTIONS (6)
  - BONE DISORDER [None]
  - BONE FISTULA [None]
  - OSTEONECROSIS [None]
  - PERIODONTITIS [None]
  - TOOTH DISORDER [None]
  - TOOTH EXTRACTION [None]
